FAERS Safety Report 5223204-7 (Version None)
Quarter: 2007Q1

REPORT INFORMATION
  Report Type: 
  Country: None (occurrence: None)
  Receive Date: 20061201
  Receipt Date: 20060830
  Transmission Date: 20070707
  Serious: No
  Sender: FDA-Public Use
  Company Number: 2006PV007108

PATIENT
  Age: 61 Year
  Sex: Female
  Weight: 81.6475 kg

DRUGS (10)
  1. BYETTA [Suspect]
     Indication: DIABETES MELLITUS NON-INSULIN-DEPENDENT
     Dosage: SEE IMAGE
     Route: 058
     Dates: start: 20060116, end: 20060101
  2. BYETTA [Suspect]
     Indication: DIABETES MELLITUS NON-INSULIN-DEPENDENT
     Dosage: SEE IMAGE
     Route: 058
     Dates: start: 20060827, end: 20060801
  3. BYETTA [Suspect]
  4. METFORMIN HCL [Concomitant]
  5. GLUCOTROL XL [Concomitant]
  6. NEXIUM [Concomitant]
  7. WELLBUTRIN [Concomitant]
  8. CRESTOR [Concomitant]
  9. COZAAR [Concomitant]
  10. CALCIUM [Concomitant]

REACTIONS (11)
  - ABDOMINAL DISTENSION [None]
  - ANXIETY [None]
  - BLOOD GLUCOSE DECREASED [None]
  - DECREASED APPETITE [None]
  - DYSPNOEA [None]
  - FEELING JITTERY [None]
  - HEADACHE [None]
  - JOINT SWELLING [None]
  - LIGAMENT INJURY [None]
  - SENSATION OF FOREIGN BODY [None]
  - WEIGHT DECREASED [None]
